FAERS Safety Report 24173177 (Version 1)
Quarter: 2024Q3

REPORT INFORMATION
  Report Type: Spontaneous
  Country: GR (occurrence: GR)
  Receive Date: 20240805
  Receipt Date: 20240805
  Transmission Date: 20241017
  Serious: Yes (Other)
  Sender: MYLAN
  Company Number: None

PATIENT
  Age: 40 Year
  Sex: Male
  Weight: 85 kg

DRUGS (6)
  1. LIPITOR [Suspect]
     Active Substance: ATORVASTATIN CALCIUM
     Indication: Dyslipidaemia
     Dosage: UNK UNK, QD, 10, 5 EVERY DAY
     Route: 065
     Dates: start: 20240305, end: 20240616
  2. EZETIMIBE [Suspect]
     Active Substance: EZETIMIBE
     Indication: Dyslipidaemia
     Dosage: UNK UNK, QD, 10, 5 EVERY DAY
     Route: 065
     Dates: start: 20240305, end: 20240616
  3. CRESTOR [Suspect]
     Active Substance: ROSUVASTATIN CALCIUM
     Indication: Dyslipidaemia
     Dosage: UNK UNK, QD, 10, 5 EVERY DAY
     Route: 065
     Dates: start: 20240305, end: 20240616
  4. TESTOSTERONE [Concomitant]
     Active Substance: TESTOSTERONE
     Indication: Primary hypogonadism
     Dosage: UNK
     Route: 065
  5. TRILEPTAL [Concomitant]
     Active Substance: OXCARBAZEPINE
     Indication: Epilepsy
     Dosage: UNK
     Route: 065
  6. RIZATRIPTAN [Concomitant]
     Active Substance: RIZATRIPTAN
     Indication: Migraine
     Dosage: UNK UNK, PRN, AS NECESSARY
     Route: 065

REACTIONS (3)
  - Myalgia [Recovered/Resolved]
  - Arthralgia [Recovered/Resolved]
  - Hypoaesthesia [Recovered/Resolved]

NARRATIVE: CASE EVENT DATE: 20240305
